FAERS Safety Report 6705248-9 (Version None)
Quarter: 2010Q2

REPORT INFORMATION
  Report Type: 
  Country: None (occurrence: None)
  Receive Date: 20100430
  Receipt Date: 20100419
  Transmission Date: 20101027
  Serious: Yes (Hospitalization)
  Sender: FDA-Public Use
  Company Number: US-ELI_LILLY_AND_COMPANY-US201004005957

PATIENT
  Sex: Female

DRUGS (2)
  1. ZYPREXA [Suspect]
     Dosage: 30 MG, UNK
  2. ASENAPINE [Concomitant]
     Route: 060

REACTIONS (3)
  - DYSTONIA [None]
  - PSYCHOTIC DISORDER [None]
  - URINARY TRACT INFECTION [None]
